FAERS Safety Report 25880108 (Version 3)
Quarter: 2025Q4

REPORT INFORMATION
  Report Type: Spontaneous
  Country: JP (occurrence: JP)
  Receive Date: 20251004
  Receipt Date: 20251214
  Transmission Date: 20260117
  Serious: Yes (Hospitalization)
  Sender: AMGEN
  Company Number: JP-AMGEN-JPNSP2025194514

PATIENT
  Age: 90 Year
  Sex: Female

DRUGS (4)
  1. EVENITY [Suspect]
     Active Substance: ROMOSOZUMAB-AQQG
     Indication: Osteoporosis
     Dosage: 210 MILLIGRAM, QMO
     Route: 058
     Dates: start: 20250710, end: 20250904
  2. CELECOXIB [Concomitant]
     Active Substance: CELECOXIB
     Indication: Fracture pain
     Dosage: 100 MILLIGRAM, BID
     Route: 065
     Dates: start: 20250710, end: 20250904
  3. PREGABALIN [Concomitant]
     Active Substance: PREGABALIN
     Indication: Fracture pain
     Dosage: 25 MILLIGRAM, BID
     Route: 065
     Dates: start: 20250710, end: 20250904
  4. VONOPRAZAN FUMARATE [Concomitant]
     Active Substance: VONOPRAZAN FUMARATE
     Indication: Gastrointestinal disorder
     Dosage: 10 MILLIGRAM, QD
     Route: 065
     Dates: start: 20250710, end: 20250904

REACTIONS (2)
  - Femur fracture [Unknown]
  - Fall [Unknown]

NARRATIVE: CASE EVENT DATE: 20250925
